FAERS Safety Report 9695812 (Version 2)
Quarter: 2013Q4

REPORT INFORMATION
  Report Type: Spontaneous
  Country: FR (occurrence: FR)
  Receive Date: 20131119
  Receipt Date: 20131205
  Transmission Date: 20140711
  Serious: Yes (Life-Threatening, Hospitalization, Other)
  Sender: FDA-Public Use
  Company Number: FR-PFIZER INC-2013326207

PATIENT
  Age: 13 Year
  Sex: Male

DRUGS (3)
  1. ADVIL [Suspect]
     Indication: HEADACHE
     Dosage: UNK
     Route: 048
     Dates: start: 20091215, end: 20091230
  2. ADVIL [Suspect]
     Indication: PYREXIA
  3. ADVIL [Suspect]
     Indication: SINUSITIS

REACTIONS (7)
  - Headache [Recovered/Resolved]
  - Pyrexia [Recovered/Resolved]
  - Hemiparesis [Recovered/Resolved]
  - Superior sagittal sinus thrombosis [Recovered/Resolved]
  - Brain empyema [Recovered/Resolved]
  - Superinfection [Unknown]
  - Off label use [Unknown]
